FAERS Safety Report 16070845 (Version 1)
Quarter: 2019Q2

REPORT INFORMATION
  Report Type: Spontaneous
  Country: US (occurrence: US)
  Receive Date: 20190313
  Receipt Date: 20190313
  Transmission Date: 20190711
  Serious: Yes (Hospitalization)
  Sender: FDA-Public Use
  Company Number: None

PATIENT
  Sex: Female
  Weight: 56.7 kg

DRUGS (1)
  1. NEXPLANON [Suspect]
     Active Substance: ETONOGESTREL
     Indication: CONTRACEPTION
     Dosage: ?          QUANTITY:1 IMPLANT;?
     Route: 058
     Dates: start: 20161010, end: 20181230

REACTIONS (5)
  - Intentional self-injury [None]
  - Suicidal ideation [None]
  - Anger [None]
  - Mood swings [None]
  - Depression [None]
